FAERS Safety Report 4841197-9 (Version None)
Quarter: 2005Q4

REPORT INFORMATION
  Report Type: 
  Country: None (occurrence: None)
  Receive Date: 20051130
  Receipt Date: 20051027
  Transmission Date: 20060501
  Serious: No
  Sender: FDA-Public Use
  Company Number: US-BRISTOL-MYERS SQUIBB COMPANY-13159256

PATIENT
  Sex: Female
  Weight: 104 kg

DRUGS (4)
  1. ABILIFY [Suspect]
     Indication: OBSESSIVE-COMPULSIVE DISORDER
     Dates: start: 20051004
  2. REMERON [Concomitant]
  3. PROZAC [Concomitant]
  4. LUNESTA [Concomitant]

REACTIONS (1)
  - DRUG SCREEN FALSE POSITIVE [None]
